FAERS Safety Report 7630747-5 (Version None)
Quarter: 2011Q3

REPORT INFORMATION
  Report Type: 
  Country: None (occurrence: None)
  Receive Date: 20110722
  Receipt Date: 20110720
  Transmission Date: 20111222
  Serious: Yes (Hospitalization)
  Sender: FDA-Public Use
  Company Number: IT-GILEAD-2011-0035422

PATIENT
  Sex: Female
  Weight: 90 kg

DRUGS (5)
  1. NOZINAN [Concomitant]
     Indication: PSYCHOTIC DISORDER
     Dates: start: 20090101
  2. ATRIPLA [Suspect]
     Indication: HIV INFECTION
     Route: 048
     Dates: start: 20100309
  3. EN [Concomitant]
     Indication: PSYCHOTIC DISORDER
     Dates: start: 20090101
  4. TRIFALON [Concomitant]
     Indication: PSYCHOTIC DISORDER
     Dates: start: 20110202
  5. COTRIM [Concomitant]
     Indication: ANTIFUNGAL PROPHYLAXIS
     Dates: start: 20110202

REACTIONS (3)
  - HOSPITALISATION [None]
  - GESTATIONAL DIABETES [None]
  - PREGNANCY [None]
